FAERS Safety Report 9786152 (Version 3)
Quarter: 2014Q1

REPORT INFORMATION
  Report Type: Spontaneous
  Country: IT (occurrence: IT)
  Receive Date: 20131227
  Receipt Date: 20140314
  Transmission Date: 20141002
  Serious: Yes (Other)
  Sender: FDA-Public Use
  Company Number: IT-GE HEALTHCARE MEDICAL DIAGNOSTICS-VISP-PR-1312S-0997

PATIENT
  Age: 78 Year
  Sex: Female

DRUGS (7)
  1. VISIPAQUE [Suspect]
     Indication: PRODUCT USED FOR UNKNOWN INDICATION
     Route: 042
     Dates: start: 20131203, end: 20131203
  2. VISIPAQUE [Suspect]
     Indication: DIAGNOSTIC PROCEDURE
  3. CARVEDILOL [Concomitant]
     Indication: HYPERTENSION
     Route: 048
  4. LETROZOLE [Concomitant]
     Indication: BREAST CANCER
     Route: 048
  5. OMEPRAZOLE [Concomitant]
     Route: 048
     Dates: start: 20120101, end: 20131204
  6. LASIX [Concomitant]
     Indication: CARDIAC FAILURE
     Route: 048
     Dates: start: 20120101, end: 20131204
  7. KCL RETARD [Concomitant]
     Indication: HYPOKALAEMIA
     Route: 048
     Dates: start: 20120101, end: 20131204

REACTIONS (2)
  - Purpura [Recovered/Resolved]
  - Rash [Recovered/Resolved]
